FAERS Safety Report 25713842 (Version 2)
Quarter: 2025Q3

REPORT INFORMATION
  Report Type: Spontaneous
  Country: US (occurrence: US)
  Receive Date: 20250822
  Receipt Date: 20250919
  Transmission Date: 20251020
  Serious: Yes (Hospitalization)
  Sender: RIGEL PHARMACEUTICALS
  Company Number: US-RIGEL Pharmaceuticals, INC-20250800095

PATIENT
  Sex: Male

DRUGS (2)
  1. TAVALISSE [Suspect]
     Active Substance: FOSTAMATINIB
     Indication: Immune thrombocytopenia
     Dosage: 150 MILLIGRAM, BID
     Route: 048
     Dates: start: 20250724
  2. PREDNISONE [Concomitant]
     Active Substance: PREDNISONE
     Indication: Product used for unknown indication

REACTIONS (6)
  - Hospitalisation [Recovered/Resolved]
  - Platelet count increased [Unknown]
  - Hyperhidrosis [Unknown]
  - Unevaluable event [Unknown]
  - Fluid retention [Unknown]
  - Oedema [Unknown]

NARRATIVE: CASE EVENT DATE: 20250101
